FAERS Safety Report 5535994-4 (Version None)
Quarter: 2007Q4

REPORT INFORMATION
  Report Type: 
  Country: None (occurrence: None)
  Receive Date: 20071206
  Receipt Date: 20071128
  Transmission Date: 20080405
  Serious: Yes (Other)
  Sender: FDA-Public Use
  Company Number: SE-ASTRAZENECA-2007SE06408

PATIENT
  Age: 823 Month
  Sex: Female
  Weight: 64 kg

DRUGS (5)
  1. ARIMIDEX [Suspect]
     Indication: BREAST CANCER
     Route: 048
     Dates: start: 20050701
  2. SALURES [Concomitant]
     Indication: HYPERTENSION
     Dates: start: 20050101
  3. AMLODIPINE [Concomitant]
     Indication: HYPERTENSION
     Dates: start: 20071016
  4. CIPRAMIL [Concomitant]
     Indication: ANXIETY
     Dates: start: 19900101
  5. ATACAND [Concomitant]

REACTIONS (1)
  - POLYNEUROPATHY [None]
